FAERS Safety Report 9731805 (Version 3)
Quarter: 2014Q1

REPORT INFORMATION
  Report Type: Report from Study
  Country: JP (occurrence: JP)
  Receive Date: 20131204
  Receipt Date: 20140322
  Transmission Date: 20141002
  Serious: Yes (Life-Threatening, Hospitalization)
  Sender: FDA-Public Use
  Company Number: JP-AMGEN-JPNCT2013085100

PATIENT
  Age: 80 Year
  Sex: Female
  Weight: 45 kg

DRUGS (13)
  1. DARBEPOETIN ALFA [Suspect]
     Indication: NEPHROGENIC ANAEMIA
     Dosage: 60 MUG, Q2WK
     Route: 058
     Dates: start: 20110805, end: 20130112
  2. LASIX                              /00032601/ [Concomitant]
     Dosage: UNK
     Route: 048
  3. MAINTATE [Concomitant]
     Dosage: UNK
     Route: 048
  4. DIOVAN [Concomitant]
     Dosage: UNK
     Route: 048
  5. CONIEL [Concomitant]
     Dosage: UNK
     Route: 048
  6. CARDENALIN [Concomitant]
     Dosage: UNK
     Route: 048
  7. ZYLORIC [Concomitant]
     Dosage: UNK
     Route: 048
  8. GASTER D [Concomitant]
     Dosage: UNK
     Route: 048
  9. FERRUM                             /00023505/ [Concomitant]
     Dosage: UNK
     Route: 048
  10. REMINYL [Concomitant]
     Dosage: UNK
     Route: 048
  11. ADALAT [Concomitant]
     Dosage: UNK
     Route: 048
  12. PROTECADIN [Concomitant]
     Dosage: UNK
     Route: 048
  13. FEBURIC [Concomitant]
     Dosage: UNK
     Route: 048

REACTIONS (3)
  - Upper respiratory tract infection [Recovered/Resolved]
  - Decreased appetite [Recovered/Resolved]
  - Cardiac failure [Recovering/Resolving]
